FAERS Safety Report 18574907 (Version 3)
Quarter: 2021Q1

REPORT INFORMATION
  Report Type: Report from Study
  Country: None (occurrence: CA)
  Receive Date: 20201203
  Receipt Date: 20210305
  Transmission Date: 20210419
  Serious: Yes (Other)
  Sender: FDA-Public Use
  Company Number: CA-ABBVIE-20K-028-3462030-00

PATIENT
  Age: 67 Year
  Sex: Male

DRUGS (2)
  1. LUPRON DEPOT [Suspect]
     Active Substance: LEUPROLIDE ACETATE
     Route: 030
  2. LUPRON DEPOT [Suspect]
     Active Substance: LEUPROLIDE ACETATE
     Indication: PROSTATE CANCER
     Route: 030
     Dates: start: 20200325

REACTIONS (14)
  - Depressed mood [Not Recovered/Not Resolved]
  - Frustration tolerance decreased [Unknown]
  - Testicular atrophy [Not Recovered/Not Resolved]
  - Metastatic neoplasm [Not Recovered/Not Resolved]
  - Agitation [Unknown]
  - Alopecia [Unknown]
  - Sweat gland disorder [Unknown]
  - Hot flush [Not Recovered/Not Resolved]
  - Neoplasm malignant [Not Recovered/Not Resolved]
  - Pyrexia [Recovering/Resolving]
  - Pain [Recovering/Resolving]
  - Temperature intolerance [Not Recovered/Not Resolved]
  - Emotional distress [Unknown]
  - Psychiatric symptom [Not Recovered/Not Resolved]

NARRATIVE: CASE EVENT DATE: 202003
